FAERS Safety Report 6256850-2 (Version None)
Quarter: 2009Q3

REPORT INFORMATION
  Report Type: 
  Country: None (occurrence: None)
  Receive Date: 20090706
  Receipt Date: 20090629
  Transmission Date: 20100115
  Serious: Yes (Other)
  Sender: FDA-Public Use
  Company Number: PHHY2008CA19981

PATIENT
  Sex: Male

DRUGS (3)
  1. SANDOSTATIN LAR [Suspect]
     Indication: CARCINOID TUMOUR
     Dosage: 60 MG EVERY 10 DAYS
     Route: 030
     Dates: start: 20070530
  2. SANDOSTATIN LAR [Suspect]
     Dosage: 60 MG EVERY 10 DAYS
     Route: 030
     Dates: start: 20070530
  3. ATENOLOL [Concomitant]

REACTIONS (4)
  - BLOOD PRESSURE SYSTOLIC INCREASED [None]
  - DIARRHOEA [None]
  - HEART RATE DECREASED [None]
  - HYPOTENSION [None]
